FAERS Safety Report 24215428 (Version 1)
Quarter: 2024Q3

REPORT INFORMATION
  Report Type: Spontaneous
  Country: CN (occurrence: CN)
  Receive Date: 20240816
  Receipt Date: 20240816
  Transmission Date: 20241017
  Serious: Yes (Death)
  Sender: STRIDES
  Company Number: CN-STRIDES ARCOLAB LIMITED-2024SP010034

PATIENT
  Age: 7 Decade
  Sex: Male

DRUGS (6)
  1. PREDNISOLONE [Suspect]
     Active Substance: PREDNISOLONE
     Indication: Tubulointerstitial nephritis
     Dosage: 55 MILLIGRAM, QD
     Route: 048
  2. PREDNISOLONE [Suspect]
     Active Substance: PREDNISOLONE
     Indication: Acute kidney injury
  3. METHYLPREDNISOLONE [Suspect]
     Active Substance: METHYLPREDNISOLONE
     Indication: Tubulointerstitial nephritis
     Dosage: 240 MILLIGRAM, QD
     Route: 042
  4. METHYLPREDNISOLONE [Suspect]
     Active Substance: METHYLPREDNISOLONE
     Indication: Acute kidney injury
  5. FAMITINIB [Concomitant]
     Active Substance: FAMITINIB
     Indication: Colon cancer
     Dosage: UNK
     Route: 065
  6. RETLIRAFUSP ALFA [Concomitant]
     Active Substance: RETLIRAFUSP ALFA
     Indication: Colon cancer
     Dosage: UNK
     Route: 065

REACTIONS (1)
  - Drug ineffective [Fatal]
